FAERS Safety Report 5970585 (Version 23)
Quarter: 2013Q4

REPORT INFORMATION
  Report Type: Spontaneous
  Country: US (occurrence: US)
  Receive Date: 20060127
  Receipt Date: 20131211
  Transmission Date: 20140711
  Serious: Yes (Death, Hospitalization, Other)
  Sender: FDA-Public Use
  Company Number: PHEH2006US01250

PATIENT
  Age: 44 Year
  Sex: Male
  Weight: 74.83 kg

DRUGS (37)
  1. AREDIA [Suspect]
     Indication: PLASMA CELL MYELOMA
     Dosage: 90 MG, QMO
     Dates: start: 1998
  2. AREDIA [Suspect]
     Dates: start: 1999
  3. ZOMETA [Suspect]
     Indication: PLASMA CELL MYELOMA
     Dates: start: 1999
  4. ZOMETA [Suspect]
     Dosage: 4 MG QMO
     Dates: start: 2002, end: 200409
  5. EFFEXOR-XR [Concomitant]
     Dosage: 150 MG, QD
     Route: 048
  6. HYDROCODONE [Concomitant]
  7. MORPHINE SULFATE [Concomitant]
  8. ALPRAZOLAM [Concomitant]
     Dosage: 0.25 MG, PRN
  9. SPIRONOLACTONE W/HYDROCHLOROTHIAZIDE [Concomitant]
  10. MAVIK [Concomitant]
     Dosage: 2 MG, QD
  11. PROCHLORPERAZINE [Concomitant]
     Dosage: 10 MG, PRN
  12. HYDROCODONE W/APAP [Concomitant]
  13. PHENERGAN ^AVENTIS PHARMA^ [Concomitant]
  14. COUMADIN ^BOOTS^ [Concomitant]
  15. OXYCONTIN [Concomitant]
  16. MS CONTIN [Concomitant]
  17. FLEXERIL [Concomitant]
  18. MIRALAX [Concomitant]
  19. PREVACID [Concomitant]
  20. AMBIEN [Concomitant]
  21. REVLIMID [Concomitant]
  22. DEXAMETHASONE [Concomitant]
  23. TIAZAC [Concomitant]
  24. NORVASK [Concomitant]
  25. FIBERCON [Concomitant]
  26. COLACE [Concomitant]
  27. VICOPROFEN [Concomitant]
  28. PEPCID [Concomitant]
  29. TRANDOLAPRIL [Concomitant]
  30. ALDACTAZIDE [Concomitant]
  31. ALBUTEROL [Concomitant]
  32. ATROVENT [Concomitant]
  33. REGLAN                                  /USA/ [Concomitant]
  34. MIACALCIN [Concomitant]
  35. AMITIZA [Concomitant]
  36. CYCLOBENZAPRINE [Concomitant]
  37. LORTAB [Concomitant]

REACTIONS (112)
  - Death [Fatal]
  - Osteonecrosis of jaw [Not Recovered/Not Resolved]
  - Regurgitation [Unknown]
  - Dysphagia [Unknown]
  - Clavicle fracture [Unknown]
  - Osteoporosis [Unknown]
  - Abscess oral [Unknown]
  - Salivary duct obstruction [Unknown]
  - Oral pain [Unknown]
  - Erythema [Not Recovered/Not Resolved]
  - Primary sequestrum [Unknown]
  - Osteomyelitis [Unknown]
  - Bone disorder [Unknown]
  - Pain in jaw [Not Recovered/Not Resolved]
  - Pyrexia [Unknown]
  - Swelling [Unknown]
  - Trismus [Unknown]
  - Induration [Unknown]
  - Cellulitis [Unknown]
  - Gingival oedema [Unknown]
  - Face oedema [Unknown]
  - Gingival bleeding [Unknown]
  - Jaw fracture [Unknown]
  - Infection [Not Recovered/Not Resolved]
  - Fibrosis [Unknown]
  - Excessive granulation tissue [Not Recovered/Not Resolved]
  - Metastases to bone [Unknown]
  - Constipation [Recovering/Resolving]
  - Osteoarthritis [Unknown]
  - Sinusitis [Unknown]
  - Haematemesis [Unknown]
  - Renal failure [Unknown]
  - Irritable bowel syndrome [Unknown]
  - Nerve compression [Unknown]
  - Platelet count increased [Unknown]
  - Aspartate aminotransferase increased [Unknown]
  - Alanine aminotransferase increased [Unknown]
  - Gynaecomastia [Unknown]
  - Pancytopenia [Unknown]
  - Neuropathy peripheral [Unknown]
  - Splenomegaly [Unknown]
  - Metastatic pain [Unknown]
  - Plasma cell myeloma [Unknown]
  - Lethargy [Unknown]
  - Asthenia [Unknown]
  - Disseminated intravascular coagulation [Unknown]
  - Pathological fracture [Unknown]
  - Intervertebral disc disorder [Unknown]
  - Intervertebral disc degeneration [Unknown]
  - Lumbar spinal stenosis [Unknown]
  - Anaemia [Unknown]
  - Osteosclerosis [Unknown]
  - Scoliosis [Unknown]
  - Malignant neoplasm progression [Unknown]
  - Renal failure chronic [Unknown]
  - Spinal cord compression [Unknown]
  - Emotional distress [Unknown]
  - Spinal osteoarthritis [Unknown]
  - Extradural neoplasm [Unknown]
  - Hyponatraemia [Unknown]
  - Renal failure acute [Recovering/Resolving]
  - Thrombocytopenia [Unknown]
  - Osteitis [Unknown]
  - Intervertebral disc space narrowing [Unknown]
  - Loose tooth [Unknown]
  - Tooth loss [Unknown]
  - Pleural effusion [Unknown]
  - Bacterial disease carrier [Unknown]
  - Mouth ulceration [Unknown]
  - Dental caries [Unknown]
  - Oral discharge [Unknown]
  - Tooth infection [Unknown]
  - Neoplasm [Unknown]
  - Epistaxis [Unknown]
  - Metastases to chest wall [Unknown]
  - Haemorrhage [Unknown]
  - Oesophageal motility disorder [Unknown]
  - Chondromalacia [Unknown]
  - Dyspnoea [Unknown]
  - Pulmonary embolism [Unknown]
  - Pseudomeningocele [Unknown]
  - Perineurial cyst [Unknown]
  - Gastrooesophageal reflux disease [Unknown]
  - Dyspepsia [Unknown]
  - Exostosis [Unknown]
  - Musculoskeletal pain [Unknown]
  - Anxiety [Unknown]
  - Abdominal distension [Unknown]
  - Nausea [Unknown]
  - Rhinalgia [Unknown]
  - Mouth haemorrhage [Unknown]
  - Contusion [Unknown]
  - Urinary incontinence [Unknown]
  - Lip pain [Unknown]
  - Glaucoma [Unknown]
  - Astigmatism [Unknown]
  - Presbyopia [Unknown]
  - Seasonal allergy [Unknown]
  - Rhinorrhoea [Unknown]
  - Upper-airway cough syndrome [Unknown]
  - Myalgia [Unknown]
  - Visual field defect [Unknown]
  - Asthenopia [Unknown]
  - Retinal haemorrhage [Unknown]
  - Papilloedema [Unknown]
  - Hypoacusis [Unknown]
  - Impaired healing [Unknown]
  - Deafness [Unknown]
  - Weight decreased [Unknown]
  - Carpal tunnel syndrome [Unknown]
  - Bone pain [Unknown]
  - Local swelling [Unknown]
